FAERS Safety Report 5691681-3 (Version None)
Quarter: 2008Q2

REPORT INFORMATION
  Report Type: 
  Country: None (occurrence: None)
  Receive Date: 20080402
  Receipt Date: 20080325
  Transmission Date: 20081010
  Serious: Yes (Hospitalization)
  Sender: FDA-Public Use
  Company Number: BE-AMGEN-UK268813

PATIENT
  Sex: Male

DRUGS (6)
  1. KEPIVANCE [Suspect]
     Indication: DRUG USE FOR UNKNOWN INDICATION
     Route: 058
     Dates: start: 20070821, end: 20070823
  2. TENORMIN [Concomitant]
     Route: 048
  3. LORAMET [Concomitant]
     Route: 048
  4. DIFLUCAN [Concomitant]
     Route: 042
  5. ZANTAC [Concomitant]
     Route: 042
  6. COLIMYCINE [Concomitant]
     Route: 048
     Dates: start: 20070821, end: 20070831

REACTIONS (1)
  - DIARRHOEA [None]
